FAERS Safety Report 17812802 (Version 1)
Quarter: 2020Q2

REPORT INFORMATION
  Report Type: Spontaneous
  Country: GB (occurrence: GB)
  Receive Date: 20200521
  Receipt Date: 20200521
  Transmission Date: 20200714
  Serious: Yes (Other)
  Sender: FDA-Public Use
  Company Number: GB-PFIZER INC-2020105663

PATIENT
  Age: 73 Year
  Sex: Female

DRUGS (4)
  1. AXITINIB [Suspect]
     Active Substance: AXITINIB
     Indication: PRODUCT USED FOR UNKNOWN INDICATION
     Dosage: 5 MG, UNK
  2. AVELUMAB [Suspect]
     Active Substance: AVELUMAB
     Indication: PRODUCT USED FOR UNKNOWN INDICATION
     Dosage: UNK
  3. AVELUMAB [Suspect]
     Active Substance: AVELUMAB
     Dosage: UNK
  4. LEVOTHYROXINE. [Suspect]
     Active Substance: LEVOTHYROXINE
     Indication: PRODUCT USED FOR UNKNOWN INDICATION
     Dosage: 100 UG, 1X/DAY

REACTIONS (4)
  - Diarrhoea [Unknown]
  - Anxiety [Unknown]
  - Tremor [Unknown]
  - Hyperthyroidism [Unknown]
